FAERS Safety Report 22100356 (Version 2)
Quarter: 2023Q2

REPORT INFORMATION
  Report Type: Report from Study
  Country: CO (occurrence: CO)
  Receive Date: 20230315
  Receipt Date: 20230611
  Transmission Date: 20230721
  Serious: Yes (Hospitalization)
  Sender: FDA-Public Use
  Company Number: CO-ABBVIE-4341875

PATIENT
  Age: 54 Year
  Sex: Female

DRUGS (4)
  1. HUMIRA [Suspect]
     Active Substance: ADALIMUMAB
     Indication: Rheumatoid arthritis
     Dosage: FORM STRENGTH 40 MILLIGRAMS
     Route: 058
     Dates: end: 20221209
  2. HUMIRA [Suspect]
     Active Substance: ADALIMUMAB
  3. PROPRANOLOL [Concomitant]
     Active Substance: PROPRANOLOL HYDROCHLORIDE
     Indication: Cardiac disorder
     Route: 048
     Dates: start: 202302
  4. DOLEX [Concomitant]
     Active Substance: IBUPROFEN
     Indication: Pain

REACTIONS (18)
  - Hemiparesis [Recovering/Resolving]
  - Pain in extremity [Recovering/Resolving]
  - Nausea [Recovering/Resolving]
  - Paraesthesia [Recovering/Resolving]
  - Thyroid disorder [Recovering/Resolving]
  - Chest pain [Recovering/Resolving]
  - Presyncope [Recovering/Resolving]
  - Tachycardia [Recovering/Resolving]
  - Dyspnoea [Recovering/Resolving]
  - Arthralgia [Recovering/Resolving]
  - Feeling hot [Recovering/Resolving]
  - Hypothyroidism [Recovering/Resolving]
  - Inflammation [Recovering/Resolving]
  - Weight decreased [Recovering/Resolving]
  - Lung disorder [Recovering/Resolving]
  - Skin burning sensation [Recovering/Resolving]
  - Heart rate increased [Recovering/Resolving]
  - Peripheral swelling [Recovering/Resolving]

NARRATIVE: CASE EVENT DATE: 20230201
